FAERS Safety Report 16738562 (Version 1)
Quarter: 2019Q3

REPORT INFORMATION
  Report Type: Spontaneous
  Country: DE (occurrence: DE)
  Receive Date: 20190826
  Receipt Date: 20190826
  Transmission Date: 20191005
  Serious: Yes (Hospitalization, Other)
  Sender: FDA-Public Use
  Company Number: DE-SHILPA MEDICARE LIMITED-SML-DE-2019-00183

PATIENT
  Age: 67 Year
  Sex: Male
  Weight: 92 kg

DRUGS (2)
  1. IMATINIB, UNKNOWN [Suspect]
     Active Substance: IMATINIB
     Indication: PRODUCT USED FOR UNKNOWN INDICATION
     Dosage: 400MG 1 X TGL
     Route: 048
     Dates: start: 20180528
  2. IMATINIB, UNKNOWN [Suspect]
     Active Substance: IMATINIB
     Indication: PRODUCT USED FOR UNKNOWN INDICATION
     Dosage: 400MG 1X TGL
     Route: 048
     Dates: start: 20180528

REACTIONS (1)
  - Pulmonary embolism [Recovering/Resolving]

NARRATIVE: CASE EVENT DATE: 20190410
